FAERS Safety Report 17822861 (Version 4)
Quarter: 2020Q4

REPORT INFORMATION
  Report Type: Report from Study
  Country: None (occurrence: US)
  Receive Date: 20200526
  Receipt Date: 20201210
  Transmission Date: 20210113
  Serious: Yes (Hospitalization, Other)
  Sender: FDA-Public Use
  Company Number: US-ABBVIE-20K-163-3282263-00

PATIENT
  Age: 65 Year
  Sex: Male
  Weight: 114.86 kg

DRUGS (1)
  1. HUMIRA [Suspect]
     Active Substance: ADALIMUMAB
     Indication: COLITIS ULCERATIVE
     Route: 058
     Dates: start: 2018

REACTIONS (2)
  - Large intestine polyp [Recovered/Resolved]
  - Colonoscopy abnormal [Unknown]

NARRATIVE: CASE EVENT DATE: 20200127
